FAERS Safety Report 21549334 (Version 2)
Quarter: 2022Q4

REPORT INFORMATION
  Report Type: Spontaneous
  Country: US (occurrence: US)
  Receive Date: 20221103
  Receipt Date: 20221119
  Transmission Date: 20230113
  Serious: Yes (Other)
  Sender: FDA-Public Use
  Company Number: US-TEVA-2022-US-2821413

PATIENT
  Age: 26 Year
  Sex: Female

DRUGS (8)
  1. CARBOPLATIN [Suspect]
     Active Substance: CARBOPLATIN
     Indication: Lung adenocarcinoma stage IV
     Dosage: INITIAL DOSE NOT STATED
     Route: 065
  2. CARBOPLATIN [Suspect]
     Active Substance: CARBOPLATIN
     Dosage: EVERY 3 WEEKS
     Route: 042
  3. PEMETREXED [Suspect]
     Active Substance: PEMETREXED
     Indication: Lung adenocarcinoma stage IV
     Dosage: INITIAL DOSE NOT STATED
     Route: 065
  4. PEMETREXED [Suspect]
     Active Substance: PEMETREXED
     Dosage: EVERY 3 WEEKS
     Route: 042
  5. PEMBROLIZUMAB [Suspect]
     Active Substance: PEMBROLIZUMAB
     Indication: Lung adenocarcinoma stage IV
     Dosage: EVERY 3 WEEKS
     Route: 042
  6. PEMBROLIZUMAB [Suspect]
     Active Substance: PEMBROLIZUMAB
     Dosage: MAINTENANCE DOSE, EVERY 6 WEEKS
     Route: 042
  7. OLAPARIB [Suspect]
     Active Substance: OLAPARIB
     Indication: Lung adenocarcinoma stage IV
     Dosage: 300 MILLIGRAM DAILY;
     Route: 065
  8. ELIQUIS [Concomitant]
     Active Substance: APIXABAN
     Indication: Pulmonary embolism
     Route: 065

REACTIONS (9)
  - Nausea [Recovering/Resolving]
  - Constipation [Unknown]
  - Alopecia [Unknown]
  - Neuropathy peripheral [Unknown]
  - Thrombocytopenia [Unknown]
  - Anaemia [Unknown]
  - Arthralgia [Unknown]
  - Dyspepsia [Unknown]
  - Menometrorrhagia [Unknown]
